FAERS Safety Report 6489944-7 (Version None)
Quarter: 2009Q4

REPORT INFORMATION
  Report Type: 
  Country: None (occurrence: None)
  Receive Date: 20091209
  Receipt Date: 20091209
  Transmission Date: 20100525
  Serious: No
  Sender: FDA-Public Use
  Company Number: None

PATIENT
  Sex: Male

DRUGS (1)
  1. COLD REMEDY ORAL MIST [Suspect]
     Dosage: SPORADIC
     Dates: start: 20090201

REACTIONS (1)
  - HYPOSMIA [None]
